FAERS Safety Report 16166774 (Version 1)
Quarter: 2019Q2

REPORT INFORMATION
  Report Type: Other
  Country: None (occurrence: AU)
  Receive Date: 20190407
  Receipt Date: 20190407
  Transmission Date: 20190711
  Serious: Yes (Other)
  Sender: FDA-Public Use
  Company Number: AU-LABORATOIRE HRA PHARMA-2065441

PATIENT
  Age: 27 Year
  Sex: Female

DRUGS (2)
  1. METOPIRONE [Suspect]
     Active Substance: METYRAPONE
     Indication: CUSHING^S SYNDROME
  2. BISOPROLOL [Concomitant]
     Active Substance: BISOPROLOL

REACTIONS (7)
  - Hypertension [None]
  - Exposure via breast milk [None]
  - Exposure during pregnancy [None]
  - Peripartum cardiomyopathy [None]
  - Hypokalaemia [None]
  - Gestational diabetes [None]
  - Off label use [None]
